FAERS Safety Report 18542490 (Version 2)
Quarter: 2021Q1

REPORT INFORMATION
  Report Type: Spontaneous
  Country: US (occurrence: US)
  Receive Date: 20201124
  Receipt Date: 20210128
  Transmission Date: 20210419
  Serious: Yes (Death, Hospitalization, Other)
  Sender: FDA-Public Use
  Company Number: US-PURDUE-USA-2020-0164499

PATIENT
  Age: 55 Year
  Sex: Male

DRUGS (2)
  1. OXYCODONE HYDROCHLORIDE (SIMILAR TO NDA 22?272) [Suspect]
     Active Substance: OXYCODONE HYDROCHLORIDE
     Indication: ABDOMINAL PAIN
     Dosage: UNK
     Route: 048
  2. GABAPENTIN. [Suspect]
     Active Substance: GABAPENTIN
     Indication: PAIN
     Dosage: UNK
     Route: 065

REACTIONS (18)
  - Hypertension [Fatal]
  - Nephrectomy [Unknown]
  - Renal adenoma [Unknown]
  - Drug dependence [Unknown]
  - Hepatosplenomegaly [Unknown]
  - Cardiomegaly [Unknown]
  - Nephrolithiasis [Unknown]
  - Myocardial fibrosis [Unknown]
  - Toxicity to various agents [Fatal]
  - Pneumonia [Unknown]
  - Pleural effusion [Unknown]
  - Renal cyst [Unknown]
  - Arteriosclerosis [Fatal]
  - Abdominal adhesions [Unknown]
  - Chronic kidney disease [Fatal]
  - Hypertensive nephropathy [Unknown]
  - Pulmonary oedema [Unknown]
  - Pleural adhesion [Unknown]

NARRATIVE: CASE EVENT DATE: 20030404
